FAERS Safety Report 23978222 (Version 6)
Quarter: 2025Q2

REPORT INFORMATION
  Report Type: Report from Study
  Country: CA (occurrence: CA)
  Receive Date: 20240614
  Receipt Date: 20250429
  Transmission Date: 20250717
  Serious: Yes (Other)
  Sender: TAKEDA
  Company Number: CA-TAKEDA-2023TUS101016

PATIENT
  Age: 61 Year
  Sex: Female

DRUGS (22)
  1. HUMAN IMMUNOGLOBULIN G [Suspect]
     Active Substance: HUMAN IMMUNOGLOBULIN G
     Indication: Secondary immunodeficiency
  2. HYQVIA [Suspect]
     Active Substance: HUMAN IMMUNOGLOBULIN G\HYALURONIDASE (HUMAN RECOMBINANT)
     Indication: Secondary immunodeficiency
     Dosage: 30 GRAM, Q3WEEKS
     Dates: start: 20240528
  3. HYQVIA [Suspect]
     Active Substance: HUMAN IMMUNOGLOBULIN G\HYALURONIDASE (HUMAN RECOMBINANT)
     Dosage: 30 GRAM, Q3WEEKS
  4. HYQVIA [Suspect]
     Active Substance: HUMAN IMMUNOGLOBULIN G\HYALURONIDASE (HUMAN RECOMBINANT)
     Dosage: 30 GRAM, Q3WEEKS
  5. HYQVIA [Suspect]
     Active Substance: HUMAN IMMUNOGLOBULIN G\HYALURONIDASE (HUMAN RECOMBINANT)
     Dosage: 30 GRAM, Q3WEEKS
  6. HYQVIA [Suspect]
     Active Substance: HUMAN IMMUNOGLOBULIN G\HYALURONIDASE (HUMAN RECOMBINANT)
     Dosage: 30 GRAM, Q3WEEKS
  7. HYQVIA [Suspect]
     Active Substance: HUMAN IMMUNOGLOBULIN G\HYALURONIDASE (HUMAN RECOMBINANT)
     Dosage: 30 GRAM, Q4WEEKS
  8. ACTEMRA [Concomitant]
     Active Substance: TOCILIZUMAB
     Indication: Hypertension
     Dosage: UNK UNK, MONTHLY
  9. ACTEMRA [Concomitant]
     Active Substance: TOCILIZUMAB
     Indication: Cardiac failure congestive
  10. IRBESARTAN [Concomitant]
     Active Substance: IRBESARTAN
     Dosage: 130 MILLIGRAM, QD
  11. METOPROLOL [Concomitant]
     Active Substance: METOPROLOL
     Dosage: 12.5 MILLIGRAM, BID
  12. HYDROCHLOROTHIAZIDE [Concomitant]
     Active Substance: HYDROCHLOROTHIAZIDE
     Dosage: 25 MILLIGRAM, QD
  13. CELLCEPT [Concomitant]
     Active Substance: MYCOPHENOLATE MOFETIL
  14. DEXAMETHASONE [Concomitant]
     Active Substance: DEXAMETHASONE
     Dosage: 4 MILLIGRAM, QD
  15. BREO ELLIPTA [Concomitant]
     Active Substance: FLUTICASONE FUROATE\VILANTEROL TRIFENATATE
     Dosage: 1 DOSAGE FORM, QD
  16. DEXLANSOPRAZOLE [Concomitant]
     Active Substance: DEXLANSOPRAZOLE
     Dosage: 60 MILLIGRAM, QD
  17. FENTANYL [Concomitant]
     Active Substance: FENTANYL
     Dosage: 18 MILLIGRAM, QOD
  18. OXYCODONE [Concomitant]
     Active Substance: OXYCODONE
     Dosage: 5 MILLIGRAM, TID
  19. Vidextra [Concomitant]
     Dosage: 10000 INTERNATIONAL UNIT, Q72H
  20. FAMOTIDINE [Concomitant]
     Active Substance: FAMOTIDINE
  21. Oralvisc [Concomitant]
  22. CLARITIN [Concomitant]
     Active Substance: LORATADINE

REACTIONS (18)
  - Headache [Recovered/Resolved]
  - Blood pressure increased [Unknown]
  - Nausea [Recovered/Resolved]
  - Oropharyngeal pain [Recovered/Resolved]
  - Fatigue [Recovered/Resolved]
  - Incorrect drug administration rate [Not Recovered/Not Resolved]
  - Infusion site discharge [Not Recovered/Not Resolved]
  - Hiatus hernia [Unknown]
  - Fluid retention [Not Recovered/Not Resolved]
  - Inappropriate schedule of product administration [Unknown]
  - Incorrect product administration duration [Unknown]
  - Infusion site warmth [Unknown]
  - Blood pressure fluctuation [Recovered/Resolved]
  - Oedema peripheral [Recovered/Resolved]
  - Infusion site swelling [Unknown]
  - Infusion site pain [Unknown]
  - Dyspnoea [Unknown]
  - Infusion site erythema [Unknown]

NARRATIVE: CASE EVENT DATE: 20231016
